FAERS Safety Report 8937182 (Version 1)
Quarter: 2012Q4

REPORT INFORMATION
  Report Type: Spontaneous
  Country: US (occurrence: None)
  Receive Date: 20121128
  Receipt Date: 20121128
  Transmission Date: 20130627
  Serious: Yes (Hospitalization)
  Sender: FDA-Public Use
  Company Number: None

PATIENT
  Age: 69 Year
  Sex: Male

DRUGS (17)
  1. LIPITOR [Suspect]
     Indication: DYSLIPIDEMIA
     Dosage: recent
     Route: 048
  2. AMIODARONE [Suspect]
     Indication: ATRIAL FIBRILLATION
     Dosage: recent
     Route: 048
  3. ZETIA [Concomitant]
  4. OMEPRAZOLE [Concomitant]
  5. TORSEMIDE [Concomitant]
  6. VIT D [Concomitant]
  7. MTHIMAZOLE [Concomitant]
  8. CYMBALTA [Concomitant]
  9. TAMSULOSIN [Concomitant]
  10. METOPROLOL [Concomitant]
  11. MVI [Concomitant]
  12. KCL [Concomitant]
  13. BACTRIM DS [Concomitant]
  14. SENOKOT [Concomitant]
  15. APAP [Concomitant]
  16. CALCIUM CARBONATE [Concomitant]
  17. OXYCODONE [Concomitant]

REACTIONS (6)
  - Hyperthyroidism [None]
  - Atrial fibrillation [None]
  - Dehydration [None]
  - Hepatitis [None]
  - Renal failure acute [None]
  - Hypovolaemia [None]
